FAERS Safety Report 23187440 (Version 2)
Quarter: 2024Q1

REPORT INFORMATION
  Report Type: Spontaneous
  Country: None (occurrence: US)
  Receive Date: 20231115
  Receipt Date: 20240105
  Transmission Date: 20240410
  Serious: No
  Sender: FDA-Public Use
  Company Number: US-Ascend Therapeutics US, LLC-2148317

PATIENT
  Sex: Male

DRUGS (2)
  1. ANDROGEL [Suspect]
     Active Substance: TESTOSTERONE
     Indication: Product used for unknown indication
     Route: 065
  2. ANDROGEL [Suspect]
     Active Substance: TESTOSTERONE
     Route: 065

REACTIONS (2)
  - Myalgia [Recovering/Resolving]
  - Muscle discomfort [Unknown]
